FAERS Safety Report 4753926-3 (Version None)
Quarter: 2005Q3

REPORT INFORMATION
  Report Type: 
  Country: None (occurrence: None)
  Receive Date: 20050825
  Receipt Date: 20050811
  Transmission Date: 20060218
  Serious: Yes (Hospitalization)
  Sender: FDA-Public Use
  Company Number: 187454

PATIENT
  Age: 66 Year
  Sex: Female
  Weight: 85.7298 kg

DRUGS (5)
  1. AVONEX [Suspect]
     Indication: MULTIPLE SCLEROSIS
     Dosage: 30 UG;Q; IM
     Route: 030
     Dates: start: 20010101, end: 20030801
  2. AVONEX [Suspect]
     Indication: MULTIPLE SCLEROSIS
     Dosage: 30 UG;Q; IM
     Route: 030
     Dates: start: 20030801
  3. BACTRIM [Concomitant]
  4. DILANTIN [Concomitant]
  5. BACLOFEN [Concomitant]

REACTIONS (3)
  - BENIGN COLONIC NEOPLASM [None]
  - DIFFICULTY IN WALKING [None]
  - MUSCULAR WEAKNESS [None]
